FAERS Safety Report 23116116 (Version 1)
Quarter: 2023Q4

REPORT INFORMATION
  Report Type: Spontaneous
  Country: US (occurrence: US)
  Receive Date: 20231027
  Receipt Date: 20231027
  Transmission Date: 20240109
  Serious: No
  Sender: FDA-Public Use
  Company Number: US-MYLANLABS-2023M1111981

PATIENT
  Sex: Male
  Weight: 81.65 kg

DRUGS (1)
  1. ACYCLOVIR [Suspect]
     Active Substance: ACYCLOVIR
     Indication: Stomatitis
     Dosage: UNK (4-6 TIMES A DAY)
     Route: 061

REACTIONS (3)
  - Lip discolouration [Unknown]
  - Expired product administered [Unknown]
  - Product physical consistency issue [Unknown]
